FAERS Safety Report 15104415 (Version 1)
Quarter: 2018Q3

REPORT INFORMATION
  Report Type: Spontaneous
  Country: JP (occurrence: JP)
  Receive Date: 20180703
  Receipt Date: 20180703
  Transmission Date: 20181010
  Serious: Yes (Other)
  Sender: FDA-Public Use
  Company Number: JP-009507513-1807JPN000111J

PATIENT
  Age: 61 Year
  Sex: Male
  Weight: 70 kg

DRUGS (8)
  1. METOLATE [Suspect]
     Active Substance: METHOTREXATE
     Indication: SPONDYLITIS
     Dosage: 10 MG, UNK
     Route: 048
     Dates: end: 20180419
  2. METOLATE [Suspect]
     Active Substance: METHOTREXATE
     Dosage: 6 MG, UNK
     Route: 048
     Dates: start: 20121005
  3. ZETIA [Suspect]
     Active Substance: EZETIMIBE
     Indication: HYPERLIPIDAEMIA
     Dosage: 10 MG, QD
     Route: 048
     Dates: start: 20100712, end: 20121004
  4. METOLATE [Suspect]
     Active Substance: METHOTREXATE
     Dosage: 8 MG, UNK
     Route: 048
     Dates: start: 20120420, end: 20121004
  5. TALION [Concomitant]
     Active Substance: BEPOTASTINE
     Indication: URTICARIA
     Dosage: 10 MG, UNK
     Route: 048
     Dates: start: 20120127
  6. FOLIAMIN [Concomitant]
     Active Substance: FOLIC ACID
     Indication: FOLATE DEFICIENCY
     Dosage: 10 MG, UNK
     Route: 048
     Dates: start: 20050121
  7. BRUFEN [Concomitant]
     Active Substance: IBUPROFEN
     Indication: URTICARIA
     Dosage: 200 MG, UNK
     Route: 048
     Dates: start: 20040612
  8. REMICADE [Concomitant]
     Active Substance: INFLIXIMAB
     Indication: SPONDYLITIS
     Dosage: 500 MG, UNK
     Route: 042
     Dates: start: 20100422

REACTIONS (1)
  - Renal impairment [Not Recovered/Not Resolved]

NARRATIVE: CASE EVENT DATE: 20120419
